FAERS Safety Report 4590615-2 (Version None)
Quarter: 2005Q1

REPORT INFORMATION
  Report Type: 
  Country: None (occurrence: None)
  Receive Date: 20050222
  Receipt Date: 20050222
  Transmission Date: 20050727
  Serious: No
  Sender: FDA-Public Use
  Company Number: None

PATIENT
  Age: 47 Year
  Sex: Male
  Weight: 70.7611 kg

DRUGS (2)
  1. SEROQUEL [Suspect]
     Dosage: 1 IN AM,  2 AT HS PO
     Route: 048
     Dates: start: 20000606
  2. INDERAL [Concomitant]

REACTIONS (1)
  - CATARACT [None]
